FAERS Safety Report 4516400-5 (Version None)
Quarter: 2004Q4

REPORT INFORMATION
  Report Type: 
  Country: None (occurrence: None)
  Receive Date: 20041202
  Receipt Date: 20041029
  Transmission Date: 20050328
  Serious: Yes (Other)
  Sender: FDA-Public Use
  Company Number: PHNU2004DE03686

PATIENT
  Age: 62 Year
  Sex: Female
  Weight: 68 kg

DRUGS (5)
  1. FLUOXETINE HCL [Concomitant]
     Dosage: 20 MG/DAY
     Route: 048
  2. MELPERONE [Concomitant]
     Dosage: 25 MG/DAY
     Route: 048
  3. ASPIRIN [Concomitant]
     Dosage: 300 MG, QD
     Route: 048
  4. TRIMIPRAMINE [Concomitant]
     Dosage: 75 MG/DAY
     Route: 048
  5. CLOZARIL [Suspect]
     Indication: MEDICATION ERROR
     Dosage: 150 MG, ONCE/SINGLE
     Route: 048
     Dates: start: 20041029, end: 20041029

REACTIONS (3)
  - FATIGUE [None]
  - HYPERTENSION [None]
  - MEDICATION ERROR [None]
